FAERS Safety Report 7564776-7 (Version None)
Quarter: 2011Q2

REPORT INFORMATION
  Report Type: 
  Country: None (occurrence: None)
  Receive Date: 20110622
  Receipt Date: 20101115
  Transmission Date: 20111010
  Serious: Yes (Death)
  Sender: FDA-Public Use
  Company Number: US-MYLANLABS-2010S1020884

PATIENT
  Age: 60 Year
  Sex: Female

DRUGS (7)
  1. LEXAPRO [Concomitant]
  2. HALDOL [Concomitant]
  3. CELEXA [Concomitant]
  4. KLONOPIN [Concomitant]
  5. CLOZAPINE [Suspect]
     Route: 048
     Dates: end: 20100101
  6. ZOLOFT [Concomitant]
  7. ATIVAN [Concomitant]

REACTIONS (2)
  - HYPOXIC-ISCHAEMIC ENCEPHALOPATHY [None]
  - CHOKING [None]
